FAERS Safety Report 19028438 (Version 1)
Quarter: 2021Q1

REPORT INFORMATION
  Report Type: Spontaneous
  Country: US (occurrence: US)
  Receive Date: 20210319
  Receipt Date: 20210319
  Transmission Date: 20210420
  Serious: No
  Sender: FDA-Public Use
  Company Number: US-AMGEN-USASP2021039081

PATIENT
  Age: 68 Year
  Sex: Female

DRUGS (4)
  1. PROLIA [Suspect]
     Active Substance: DENOSUMAB
     Indication: BONE DENSITY DECREASED
  2. COVID?19 VACCINE [Concomitant]
  3. PROLIA [Suspect]
     Active Substance: DENOSUMAB
     Indication: OSTEOPOROSIS POSTMENOPAUSAL
     Dosage: 60 MILLIGRAM, Q6MO
     Route: 058
     Dates: start: 20210225
  4. COMBIPATCH [Concomitant]
     Active Substance: ESTRADIOL\NORETHINDRONE ACETATE
     Indication: OSTEOPOROSIS

REACTIONS (19)
  - Asthenia [Not Recovered/Not Resolved]
  - Dehydration [Recovering/Resolving]
  - Pyrexia [Recovering/Resolving]
  - Swollen tongue [Recovering/Resolving]
  - Tremor [Recovering/Resolving]
  - Injection site mass [Recovering/Resolving]
  - Injection site bruising [Not Recovered/Not Resolved]
  - Back pain [Recovering/Resolving]
  - Fatigue [Not Recovered/Not Resolved]
  - Bone density decreased [Unknown]
  - Coordination abnormal [Recovering/Resolving]
  - Dizziness [Recovering/Resolving]
  - Chills [Recovering/Resolving]
  - Dyspnoea [Recovering/Resolving]
  - Rash erythematous [Recovering/Resolving]
  - Palpitations [Recovered/Resolved]
  - Gait inability [Recovering/Resolving]
  - Hypotension [Recovering/Resolving]
  - Pain in extremity [Recovering/Resolving]

NARRATIVE: CASE EVENT DATE: 202102
